FAERS Safety Report 4429854-X (Version None)
Quarter: 2004Q3

REPORT INFORMATION
  Report Type: 
  Country: None (occurrence: None)
  Receive Date: 20040820
  Receipt Date: 20040812
  Transmission Date: 20050211
  Serious: Yes (Hospitalization)
  Sender: FDA-Public Use
  Company Number: US-JNJFOC-20040803928

PATIENT
  Sex: Male

DRUGS (20)
  1. DURAGESIC [Suspect]
     Route: 062
     Dates: start: 19990401
  2. AMBIEN [Concomitant]
     Indication: INSOMNIA
     Route: 049
     Dates: start: 19980815
  3. REGLAN [Concomitant]
     Route: 049
     Dates: start: 19980908
  4. PRILOSEC [Concomitant]
     Indication: GASTRIC DISORDER
     Route: 049
     Dates: start: 19980822
  5. SENOKOT [Concomitant]
     Route: 049
     Dates: start: 19980908
  6. SENOKOT [Concomitant]
     Indication: CONSTIPATION
     Route: 049
     Dates: start: 19980908
  7. FIBERCON [Concomitant]
     Indication: CONSTIPATION
     Route: 049
     Dates: start: 19980908
  8. NEUPOGEN [Concomitant]
     Indication: NEUTROPENIA
     Route: 058
     Dates: start: 19980616
  9. FLUOROURACIL [Concomitant]
     Route: 042
     Dates: start: 19980810
  10. LEUCOVORIN [Concomitant]
     Route: 042
     Dates: start: 19980810
  11. DILAUDID [Concomitant]
     Route: 049
     Dates: start: 19990312, end: 19990409
  12. DILAUDID [Concomitant]
     Route: 049
     Dates: start: 19990312, end: 19990409
  13. DILAUDID [Concomitant]
     Route: 049
     Dates: start: 19990312, end: 19990409
  14. DILAUDID [Concomitant]
     Route: 049
     Dates: start: 19990312, end: 19990409
  15. PHENERGAN HCL [Concomitant]
     Dosage: 75 MG AS NECESSARY
     Route: 049
     Dates: start: 19990318
  16. ALDACTONE [Concomitant]
     Route: 049
     Dates: start: 19990325
  17. LACTULOSE [Concomitant]
     Indication: CONSTIPATION
     Dosage: SIX (6) TABLESPOONS
     Route: 049
     Dates: start: 19990326
  18. LASIX [Concomitant]
     Route: 049
     Dates: start: 19990326
  19. LEVAQUIN [Concomitant]
  20. EPOGEN [Concomitant]
     Dates: start: 19981005

REACTIONS (3)
  - DEEP VEIN THROMBOSIS [None]
  - INTERNATIONAL NORMALISED RATIO DECREASED [None]
  - PYREXIA [None]
